FAERS Safety Report 7964318-8 (Version None)
Quarter: 2011Q4

REPORT INFORMATION
  Report Type: 
  Country: None (occurrence: None)
  Receive Date: 20111208
  Receipt Date: 20111128
  Transmission Date: 20120403
  Serious: Yes (Hospitalization)
  Sender: FDA-Public Use
  Company Number: US-BAYER-2011-045495

PATIENT
  Age: 26 Year
  Sex: Female
  Weight: 94.331 kg

DRUGS (5)
  1. MOTRIN [Concomitant]
     Dosage: UNK
     Dates: start: 20090501
  2. LISINOPRIL [Concomitant]
     Dosage: UNK
     Dates: start: 20090401, end: 20090701
  3. YAZ [Suspect]
     Indication: CONTRACEPTION
     Dosage: UNK
     Route: 048
     Dates: start: 20070426, end: 20090909
  4. TORADOL [Concomitant]
     Dosage: UNK
     Dates: start: 20090501
  5. LORATADINE [Concomitant]
     Dosage: UNK
     Dates: start: 20090430

REACTIONS (2)
  - CHOLECYSTITIS CHRONIC [None]
  - GALLBLADDER DISORDER [None]
